FAERS Safety Report 4331228-7 (Version None)
Quarter: 2004Q1

REPORT INFORMATION
  Report Type: 
  Country: None (occurrence: None)
  Receive Date: 20040331
  Receipt Date: 20040319
  Transmission Date: 20041129
  Serious: Yes (Hospitalization)
  Sender: FDA-Public Use
  Company Number: 033-1343-M0100057

PATIENT
  Age: 1 Day
  Sex: Female
  Weight: 3.15 kg

DRUGS (15)
  1. VIRACEPT [Suspect]
     Indication: HIV INFECTION
     Dosage: 1250 MG (BID), PLACENTAL
  2. DIDANOSINE (DIDANOSINE) [Suspect]
     Indication: HIV INFECTION
     Dosage: PLACENTAL
  3. STAVUDINE (STAVUDINE) [Suspect]
     Indication: HIV INFECTION
     Dosage: PLACENTAL
  4. ZIDOVUDINE [Suspect]
     Indication: HIV INFECTION
     Dosage: 200 MG/20 ML, PLACENTAL
     Dates: start: 20001013, end: 20001013
  5. ZIDOVUDINE [Suspect]
     Indication: INFECTION PROPHYLAXIS
     Dosage: 200 MG/20 ML, PLACENTAL
     Dates: start: 20001013, end: 20001013
  6. ZIDOVUDINE [Suspect]
     Indication: HIV INFECTION
     Dosage: 200 MG/20 ML, PLACENTAL
     Dates: start: 20001001
  7. ZIDOVUDINE [Suspect]
     Indication: INFECTION PROPHYLAXIS
     Dosage: 200 MG/20 ML, PLACENTAL
     Dates: start: 20001001
  8. INDINAVIR SULFATE (INDINAVIR SULFATE) [Suspect]
     Indication: HIV INFECTION
     Dosage: PLACENTAL
  9. ECONAZOLE NITRATE [Concomitant]
  10. BROMAZEPAM (BROMAZEPAM) [Concomitant]
  11. DEXCHLORPHENIRAMINE MALEATE (DEXCHLORPHENIRAMINE MALEATE) [Concomitant]
  12. FENTICONAZOLE NITRATE (FENTICONAZOLE NITRATE) [Concomitant]
  13. BETAMETHASONE DIPROPIONATE (BETAMETHASONE DIPROPIONATE) [Concomitant]
  14. IRON (IRON) [Concomitant]
  15. MULTIVITAMIN [Concomitant]

REACTIONS (20)
  - ABDOMINAL DISTENSION [None]
  - ALANINE AMINOTRANSFERASE INCREASED [None]
  - ASPARTATE AMINOTRANSFERASE INCREASED [None]
  - BLOOD LACTATE DEHYDROGENASE INCREASED [None]
  - BLOOD LACTIC ACID INCREASED [None]
  - CAESAREAN SECTION [None]
  - CONSTIPATION [None]
  - DIARRHOEA [None]
  - GASTROOESOPHAGEAL REFLUX DISEASE [None]
  - HYPERTRIGLYCERIDAEMIA [None]
  - KETOSIS [None]
  - LACTATE PYRUVATE RATIO INCREASED [None]
  - MACROCYTOSIS [None]
  - MASTITIS [None]
  - MATERNAL DRUGS AFFECTING FOETUS [None]
  - NEONATAL DISORDER [None]
  - NEUTROPENIA NEONATAL [None]
  - PLATELET COUNT DECREASED [None]
  - PLATELET COUNT INCREASED [None]
  - RHINITIS [None]
